FAERS Safety Report 9917907 (Version 2)
Quarter: 2014Q1

REPORT INFORMATION
  Report Type: Report from Study
  Country: US (occurrence: US)
  Receive Date: 20140222
  Receipt Date: 20140222
  Transmission Date: 20141002
  Serious: Yes (Other)
  Sender: FDA-Public Use
  Company Number: US-ROCHE-1334502

PATIENT
  Sex: Male

DRUGS (6)
  1. ZELBORAF [Suspect]
     Indication: MALIGNANT MELANOMA
     Route: 065
     Dates: start: 201309
  2. ZELBORAF [Suspect]
     Dosage: DOSE REDUCED
     Route: 065
  3. LEVOTHYROXINE SODIUM [Concomitant]
     Route: 065
  4. ANAPRIL [Concomitant]
     Route: 065
  5. BETAPACE [Concomitant]
     Dosage: ONE HALF
     Route: 065
  6. LASIX [Concomitant]
     Route: 065

REACTIONS (2)
  - Metastases to central nervous system [Unknown]
  - Lacrimation increased [Unknown]
